FAERS Safety Report 9312355 (Version 12)
Quarter: 2022Q3

REPORT INFORMATION
  Report Type: Spontaneous
  Country: US (occurrence: US)
  Receive Date: 20130528
  Receipt Date: 20220707
  Transmission Date: 20221027
  Serious: Yes (Other)
  Sender: FDA-Public Use
  Company Number: US-JNJFOC-20130513285

PATIENT
  Age: 13 Year
  Sex: Male
  Weight: 65.830 kg

DRUGS (8)
  1. RISPERDAL [Suspect]
     Active Substance: RISPERIDONE
     Indication: Autism spectrum disorder
     Dosage: 0.5 MG AND 1MG
     Route: 048
     Dates: start: 20050124, end: 20060420
  2. RISPERDAL [Suspect]
     Active Substance: RISPERIDONE
     Route: 048
  3. RISPERDAL CONSTA [Suspect]
     Active Substance: RISPERIDONE
     Indication: Autism spectrum disorder
     Dosage: 25 MG, 37.5 MG AND 50 MG
     Route: 030
     Dates: start: 20060420
  4. RISPERDAL CONSTA [Suspect]
     Active Substance: RISPERIDONE
  5. RISPERDAL CONSTA [Suspect]
     Active Substance: RISPERIDONE
  6. RISPERDAL CONSTA [Suspect]
     Active Substance: RISPERIDONE
  7. SEROQUEL [Suspect]
     Active Substance: QUETIAPINE FUMARATE
     Indication: Autism spectrum disorder
     Route: 048
     Dates: start: 20050923, end: 200511
  8. CLOZARIL [Suspect]
     Active Substance: CLOZAPINE
     Indication: Product used for unknown indication
     Dosage: 25 MG AND 100 MG
     Route: 048
     Dates: start: 2005

REACTIONS (16)
  - Obesity [Not Recovered/Not Resolved]
  - Pituitary cyst [Unknown]
  - Pituitary tumour benign [Unknown]
  - Diabetes mellitus [Unknown]
  - Tardive dyskinesia [Recovering/Resolving]
  - Cerebral dysgenesis [Not Recovered/Not Resolved]
  - Secondary hypogonadism [Unknown]
  - Gait disturbance [Not Recovered/Not Resolved]
  - Kyphosis [Not Recovered/Not Resolved]
  - Posture abnormal [Unknown]
  - Speech disorder [Unknown]
  - Lethargy [Unknown]
  - Emotional distress [Recovered/Resolved]
  - Eye movement disorder [Unknown]
  - Gynaecomastia [Not Recovered/Not Resolved]
  - Blood prolactin increased [Unknown]

NARRATIVE: CASE EVENT DATE: 20060401
